FAERS Safety Report 4318360-9 (Version None)
Quarter: 2004Q1

REPORT INFORMATION
  Report Type: 
  Country: None (occurrence: None)
  Receive Date: 20040315
  Receipt Date: 20031126
  Transmission Date: 20041129
  Serious: No
  Sender: FDA-Public Use
  Company Number: 2003188304US

PATIENT
  Age: 44 Year
  Sex: Female

DRUGS (2)
  1. BEXTRA [Suspect]
     Indication: FRACTURE
     Dates: start: 20031125
  2. DARVOCET-N 100 [Concomitant]

REACTIONS (2)
  - ABDOMINAL PAIN UPPER [None]
  - ASTHENOPIA [None]
